FAERS Safety Report 22130420 (Version 2)
Quarter: 2023Q1

REPORT INFORMATION
  Report Type: Spontaneous
  Country: EG (occurrence: EG)
  Receive Date: 20230323
  Receipt Date: 20230331
  Transmission Date: 20230418
  Serious: Yes (Death, Hospitalization)
  Sender: FDA-Public Use
  Company Number: EG-PFIZER INC-PV202200074468

PATIENT
  Age: 59 Year
  Sex: Male

DRUGS (2)
  1. XALKORI [Suspect]
     Active Substance: CRIZOTINIB
     Indication: Non-small cell lung cancer metastatic
     Dosage: UNK
  2. XALKORI [Suspect]
     Active Substance: CRIZOTINIB
     Dosage: 250 MG, 2X/DAY
     Route: 048
     Dates: start: 20210622

REACTIONS (2)
  - Death [Fatal]
  - Neoplasm progression [Unknown]
